FAERS Safety Report 6405088-4 (Version None)
Quarter: 2009Q4

REPORT INFORMATION
  Report Type: 
  Country: None (occurrence: None)
  Receive Date: 20091019
  Receipt Date: 20091006
  Transmission Date: 20100525
  Serious: Yes (Other)
  Sender: FDA-Public Use
  Company Number: TW-ROCHE-661045

PATIENT

DRUGS (2)
  1. TAMIFLU [Suspect]
     Route: 065
     Dates: start: 20090801
  2. TRANQUILIZER NOS [Concomitant]
     Dates: start: 20090801

REACTIONS (1)
  - INTRA-UTERINE DEATH [None]
